FAERS Safety Report 19978901 (Version 3)
Quarter: 2021Q4

REPORT INFORMATION
  Report Type: Report from Study
  Country: US (occurrence: US)
  Receive Date: 20211020
  Receipt Date: 20211129
  Transmission Date: 20220304
  Serious: Yes (Hospitalization, Other)
  Sender: FDA-Public Use
  Company Number: US-TAIHO ONCOLOGY INC-EU-2021-00975

PATIENT
  Age: 72 Year
  Sex: Female
  Weight: 45.8 kg

DRUGS (8)
  1. LONSURF [Suspect]
     Active Substance: TIPIRACIL HYDROCHLORIDE\TRIFLURIDINE
     Indication: Colon cancer
     Dosage: CYCLE UNKNOWN. 2 TABLETS IN THE MORNING AND 3 TABLETS IN THE NIGHT
     Route: 048
     Dates: start: 20210408
  2. ELIQUIS [Concomitant]
     Active Substance: APIXABAN
     Indication: Anticoagulant therapy
  3. TELMISARTAN [Concomitant]
     Active Substance: TELMISARTAN
     Indication: Blood pressure measurement
     Dosage: AT NIGHT
  4. TELMISARTAN [Concomitant]
     Active Substance: TELMISARTAN
  5. DILTIAZEM [Concomitant]
     Active Substance: DILTIAZEM
     Indication: Blood pressure measurement
     Dosage: AT NIGHT
  6. FENTANYL [Concomitant]
     Active Substance: FENTANYL
     Dosage: DIS 75MCG/HR
  7. ONDANSETRON [Concomitant]
     Active Substance: ONDANSETRON
  8. ZOLPIDEM [Concomitant]
     Active Substance: ZOLPIDEM TARTRATE

REACTIONS (22)
  - Vascular occlusion [Not Recovered/Not Resolved]
  - Jaundice [Not Recovered/Not Resolved]
  - Cholecystitis infective [Unknown]
  - Red blood cell count decreased [Unknown]
  - Rib fracture [Unknown]
  - Dental caries [Not Recovered/Not Resolved]
  - Oral pain [Not Recovered/Not Resolved]
  - Weight decreased [Recovering/Resolving]
  - Amnesia [Not Recovered/Not Resolved]
  - Tremor [Unknown]
  - Constipation [Not Recovered/Not Resolved]
  - Pain [Not Recovered/Not Resolved]
  - Headache [Unknown]
  - Decreased appetite [Not Recovered/Not Resolved]
  - Alopecia [Not Recovered/Not Resolved]
  - Fatigue [Unknown]
  - Malaise [Unknown]
  - Nausea [Unknown]
  - Vomiting [Unknown]
  - Diarrhoea [Not Recovered/Not Resolved]
  - Dysgeusia [Unknown]
  - Asthenia [Recovering/Resolving]

NARRATIVE: CASE EVENT DATE: 20210101
